FAERS Safety Report 5000049-4 (Version None)
Quarter: 2006Q3

REPORT INFORMATION
  Report Type: 
  Country: None (occurrence: None)
  Receive Date: 20060509
  Receipt Date: 20060426
  Transmission Date: 20061208
  Serious: Yes (Hospitalization)
  Sender: FDA-Public Use
  Company Number: 2006052904

PATIENT
  Age: 70 Year
  Sex: Male
  Weight: 63 kg

DRUGS (9)
  1. SUTENT [Suspect]
     Indication: METASTATIC RENAL CELL CARCINOMA
     Dosage: 50 MG (50 MG, 1 IN 1 D), ORAL
     Route: 048
     Dates: start: 20060406
  2. ATORVASTATIN CALCIUM [Concomitant]
  3. RAMIPRIL [Concomitant]
  4. METOLAZONE [Concomitant]
  5. ALLOPURINOL [Concomitant]
  6. ALBUMIN (HUMAN) [Concomitant]
  7. FUROSEMIDE [Concomitant]
  8. CARVEDILOL [Concomitant]
  9. VALSARTAN [Concomitant]

REACTIONS (6)
  - CULTURE WOUND POSITIVE [None]
  - INJECTION SITE PHLEBITIS [None]
  - NEPHROPATHY TOXIC [None]
  - PYREXIA [None]
  - SEPSIS [None]
  - STAPHYLOCOCCAL INFECTION [None]
